FAERS Safety Report 7523984-1 (Version None)
Quarter: 2011Q2

REPORT INFORMATION
  Report Type: 
  Country: None (occurrence: None)
  Receive Date: 20110603
  Receipt Date: 20110520
  Transmission Date: 20111010
  Serious: Yes (Hospitalization)
  Sender: FDA-Public Use
  Company Number: US-AMGEN-USASP2011023626

PATIENT
  Age: 29 Year
  Sex: Female
  Weight: 51.61 kg

DRUGS (14)
  1. PREDNISONE [Concomitant]
     Dosage: 5 MG, QD
  2. FERROUS SULFATE TAB [Concomitant]
     Dosage: 325 MG, QD
  3. LIPITOR [Concomitant]
     Dosage: 10 MG, QD
  4. PROCRIT [Suspect]
     Indication: RENAL FAILURE CHRONIC
     Dosage: 40000 IU, QWK
     Route: 058
  5. ATENOLOL [Concomitant]
     Dosage: 50 MG, QD
  6. CALCITROL                          /00508501/ [Concomitant]
     Dosage: 0.25 MG, QD
  7. PROCRIT [Suspect]
     Dosage: 60000 IU, Q2WK
     Route: 058
  8. CELLCEPT                           /01275102/ [Concomitant]
     Dosage: 750 MG, BID
  9. ZOMIG [Concomitant]
     Dosage: 2.5 MG, UNK
  10. AZATHIOPRINE [Concomitant]
  11. LISINOPRIL [Concomitant]
     Dosage: 20 MG, QD
  12. CALCIUM CARBONATE [Concomitant]
     Dosage: 600 MG, QD
  13. AMLODIPINE [Concomitant]
     Dosage: 10 MG, QD
  14. NEORAL [Concomitant]
     Dosage: 50 MG, BID

REACTIONS (2)
  - THERAPEUTIC RESPONSE DECREASED [None]
  - INFECTION [None]
